FAERS Safety Report 13832556 (Version 1)
Quarter: 2017Q3

REPORT INFORMATION
  Report Type: Spontaneous
  Country: US (occurrence: US)
  Receive Date: 20170803
  Receipt Date: 20170803
  Transmission Date: 20171127
  Serious: Yes (Other)
  Sender: FDA-Public Use
  Company Number: None

PATIENT
  Sex: Male
  Weight: 99 kg

DRUGS (3)
  1. DAILY VITAMIN [Concomitant]
     Active Substance: VITAMINS
  2. PAIN RELIEF PATCHES CORALITE ( CAMPHOR (SYNTHETIC)\LEVOMENTHOL\METHYL SALICYLATE) [Suspect]
     Active Substance: CAMPHOR (SYNTHETIC)\LEVOMENTHOL\METHYL SALICYLATE
     Indication: BACK PAIN
     Dosage: QUANTITY:20 PATCH(ES);?
     Route: 062
     Dates: start: 20170711, end: 20170722
  3. GENERIC NAPROXEN SODIUM [Concomitant]

REACTIONS (8)
  - Skin reaction [None]
  - Chemical burn [None]
  - Application site irritation [None]
  - Application site hypertrophy [None]
  - Application site pruritus [None]
  - Application site erythema [None]
  - Application site inflammation [None]
  - Application site burn [None]

NARRATIVE: CASE EVENT DATE: 20170722
